FAERS Safety Report 13740918 (Version 1)
Quarter: 2017Q3

REPORT INFORMATION
  Report Type: Spontaneous
  Country: US (occurrence: US)
  Receive Date: 20170710
  Receipt Date: 20170710
  Transmission Date: 20171127
  Serious: Yes (Hospitalization)
  Sender: FDA-Public Use
  Company Number: None

PATIENT
  Age: 53 Year
  Sex: Female
  Weight: 71.4 kg

DRUGS (1)
  1. YONDELIS [Suspect]
     Active Substance: TRABECTEDIN
     Indication: SARCOMA
     Dosage: Q12D
     Route: 042
     Dates: start: 20170511

REACTIONS (3)
  - Wrong technique in product usage process [None]
  - Infusion site extravasation [None]
  - Needle issue [None]

NARRATIVE: CASE EVENT DATE: 20170623
